FAERS Safety Report 5867651-9 (Version None)
Quarter: 2008Q3

REPORT INFORMATION
  Report Type: 
  Country: None (occurrence: None)
  Receive Date: 20080902
  Receipt Date: 20080821
  Transmission Date: 20090109
  Serious: Yes (Other)
  Sender: FDA-Public Use
  Company Number: JP-JNJCH-2008022311

PATIENT
  Sex: Female

DRUGS (7)
  1. CETIRIZINE HYDROCHLORIDE [Suspect]
     Indication: ASTHMA
     Dosage: TEXT:10 MG, UNSPECIFIED
     Route: 048
  2. LAMIVUDINE [Suspect]
     Indication: ANTIVIRAL TREATMENT
     Dosage: TEXT:100 MG, UNSPECIFIED
     Route: 048
     Dates: start: 20040301, end: 20080620
  3. LAMIVUDINE [Suspect]
  4. PRANLUKAST [Suspect]
     Indication: ASTHMA
     Dosage: TEXT:450 MG, UNSPECIFIED
     Route: 048
  5. THEOPHYLLINE [Suspect]
     Indication: ASTHMA
     Dosage: TEXT:200 MG, UNSPECIFIED
     Route: 048
  6. TEMOCAPRIL [Suspect]
     Indication: HYPERTENSION
     Dosage: TEXT:4 MG, UNSPECIFIED
     Route: 048
  7. LANSOPRAZOLE [Concomitant]
     Indication: REFLUX OESOPHAGITIS
     Dosage: TEXT:30 MG, UNSPECIFIED
     Route: 048

REACTIONS (1)
  - THROMBOCYTOPENIA [None]
